FAERS Safety Report 15644197 (Version 2)
Quarter: 2018Q4

REPORT INFORMATION
  Report Type: Spontaneous
  Country: JP (occurrence: JP)
  Receive Date: 20181121
  Receipt Date: 20181205
  Transmission Date: 20190205
  Serious: Yes (Death, Hospitalization, Other)
  Sender: FDA-Public Use
  Company Number: JP-JNJFOC-20181126429

PATIENT
  Age: 83 Year
  Sex: Male
  Weight: 47.1 kg

DRUGS (9)
  1. SODIUM CHLORIDE. [Concomitant]
     Active Substance: SODIUM CHLORIDE
     Indication: ELECTROLYTE SUBSTITUTION THERAPY
     Route: 065
     Dates: start: 20180912, end: 20181105
  2. FRANDOL [Concomitant]
     Active Substance: ISOSORBIDE DINITRATE
     Indication: CARDIAC FAILURE CONGESTIVE
     Route: 061
     Dates: start: 20180519, end: 20181109
  3. CLOPIDOGREL [Interacting]
     Active Substance: CLOPIDOGREL BISULFATE
     Indication: PERIPHERAL ARTERIAL OCCLUSIVE DISEASE
     Route: 065
     Dates: start: 20180815, end: 20181105
  4. LIMAPROST [Suspect]
     Active Substance: LIMAPROST
     Indication: PERIPHERAL ARTERIAL OCCLUSIVE DISEASE
     Route: 065
     Dates: start: 20180810, end: 20180816
  5. FUROSEMIDE. [Concomitant]
     Active Substance: FUROSEMIDE
     Indication: CARDIAC FAILURE CONGESTIVE
     Route: 065
     Dates: start: 20180602, end: 20181105
  6. ALBUMIN TANNATE [Concomitant]
     Active Substance: ALBUMIN BOVINE\TANNIC ACID
     Indication: DIARRHOEA
     Route: 065
     Dates: start: 20181029, end: 20181105
  7. LIMAPROST [Suspect]
     Active Substance: LIMAPROST
     Indication: PERIPHERAL ARTERIAL OCCLUSIVE DISEASE
     Route: 065
     Dates: start: 20180817, end: 20181105
  8. LAFUTIDINE [Concomitant]
     Active Substance: LAFUTIDINE
     Indication: HAEMORRHAGE PROPHYLAXIS
     Route: 065
     Dates: start: 20180704, end: 20181105
  9. XARELTO [Suspect]
     Active Substance: RIVAROXABAN
     Indication: ATRIAL FIBRILLATION
     Route: 048
     Dates: start: 20180724, end: 20181105

REACTIONS (14)
  - Peripheral arterial occlusive disease [Unknown]
  - Pleural effusion [Unknown]
  - Dyspnoea [Unknown]
  - Cardiac failure [Fatal]
  - Hypoalbuminaemia [Unknown]
  - Pneumonia aspiration [Recovering/Resolving]
  - Labelled drug-drug interaction medication error [Fatal]
  - Depressed level of consciousness [Unknown]
  - Respiratory fatigue [Unknown]
  - Anaemia [Unknown]
  - Diarrhoea [Unknown]
  - Oxygen saturation decreased [Unknown]
  - Haemorrhage subcutaneous [Fatal]
  - Decubitus ulcer [Unknown]

NARRATIVE: CASE EVENT DATE: 20180812
